FAERS Safety Report 24426967 (Version 5)
Quarter: 2025Q3

REPORT INFORMATION
  Report Type: Report from Study
  Country: CA (occurrence: CA)
  Receive Date: 20241011
  Receipt Date: 20250730
  Transmission Date: 20251021
  Serious: Yes (Other)
  Sender: CHIESI
  Company Number: CA-CHIESI-2024CHF06557

PATIENT
  Age: 38 Year
  Sex: Male
  Weight: 57 kg

DRUGS (2)
  1. DEFERIPRONE [Suspect]
     Active Substance: DEFERIPRONE
     Indication: Sickle cell disease
     Dosage: 1 DOSAGE FORM, TID
     Route: 048
     Dates: start: 20240928
  2. DEFERIPRONE [Suspect]
     Active Substance: DEFERIPRONE
     Dosage: 1000 MILLIGRAM, QD
     Route: 048

REACTIONS (13)
  - Angina pectoris [Unknown]
  - Illness [Unknown]
  - Chest pain [Unknown]
  - Serum ferritin increased [Unknown]
  - Asthenia [Unknown]
  - Decreased appetite [Unknown]
  - Chromaturia [Unknown]
  - Vomiting [Recovered/Resolved]
  - Hypersensitivity [Recovered/Resolved]
  - Vomiting [Unknown]
  - Nausea [Unknown]
  - Off label use [Not Recovered/Not Resolved]
  - Off label use [Unknown]

NARRATIVE: CASE EVENT DATE: 20240928
